FAERS Safety Report 6240162-7 (Version None)
Quarter: 2009Q2

REPORT INFORMATION
  Report Type: 
  Country: None (occurrence: None)
  Receive Date: 20090623
  Receipt Date: 20090610
  Transmission Date: 20091009
  Serious: Yes (Other)
  Sender: FDA-Public Use
  Company Number: US-BAYER-200911784BCC

PATIENT
  Sex: Male
  Weight: 104 kg

DRUGS (3)
  1. PHILLIP'S MILK OF MAGNESIA CHERRY [Suspect]
     Indication: CONSTIPATION
     Dosage: CONSUMER TOOK 3 TABLESPOONS
     Route: 048
     Dates: start: 20090601, end: 20090601
  2. GLUCOTROL [Concomitant]
     Indication: BLOOD GLUCOSE INCREASED
     Route: 065
  3. GLUCOTROL [Concomitant]
     Dosage: AS USED: 1 DF
     Route: 065
     Dates: start: 20090601, end: 20090601

REACTIONS (1)
  - BLOOD GLUCOSE INCREASED [None]
